FAERS Safety Report 6773036-3 (Version None)
Quarter: 2010Q2

REPORT INFORMATION
  Report Type: 
  Country: None (occurrence: None)
  Receive Date: 20100614
  Receipt Date: 20100603
  Transmission Date: 20101027
  Serious: Yes (Hospitalization)
  Sender: FDA-Public Use
  Company Number: 7006913

PATIENT
  Age: 63 Year
  Sex: Male
  Weight: 84 kg

DRUGS (2)
  1. REBIF [Suspect]
     Indication: MULTIPLE SCLEROSIS
     Dosage: 44 MCG, 3 IN 1 WK, SUBCUTANEOUS
     Route: 058
     Dates: start: 20100317
  2. UNSPECIFIED PAIN PILLS (ALL OTHER THERAPEUTIC PRODUCTS) [Concomitant]

REACTIONS (7)
  - ABASIA [None]
  - IMMOBILE [None]
  - INJECTION SITE ERYTHEMA [None]
  - LUNG DISORDER [None]
  - MULTIPLE SCLEROSIS RELAPSE [None]
  - WALKING AID USER [None]
  - WHEELCHAIR USER [None]
